FAERS Safety Report 7478437-6 (Version None)
Quarter: 2011Q2

REPORT INFORMATION
  Report Type: 
  Country: None (occurrence: None)
  Receive Date: 20110513
  Receipt Date: 20100730
  Transmission Date: 20111010
  Serious: No
  Sender: FDA-Public Use
  Company Number: US-PFIZER INC-2010096952

PATIENT
  Age: 64 Year
  Sex: Female
  Weight: 68.027 kg

DRUGS (8)
  1. LUMIGAN [Concomitant]
     Indication: DRY EYE
  2. COSOPT [Concomitant]
     Indication: DRY EYE
  3. CELEBREX [Suspect]
     Indication: BURSITIS
  4. LUMIGAN [Concomitant]
     Indication: GLAUCOMA
     Dosage: UNK
  5. COSOPT [Concomitant]
     Indication: GLAUCOMA
     Dosage: UNK
  6. SYNTHROID [Concomitant]
     Indication: HYPERTHYROIDISM
     Dosage: UNK
  7. CADUET [Concomitant]
     Indication: BLOOD PRESSURE INCREASED
     Dosage: UNK
  8. CELEBREX [Suspect]
     Indication: SCIATIC NERVE INJURY
     Dosage: 200 MG, 2X/DAY
     Route: 048
     Dates: start: 20100727

REACTIONS (1)
  - DRY EYE [None]
